FAERS Safety Report 10218420 (Version 2)
Quarter: 2014Q3

REPORT INFORMATION
  Report Type: Spontaneous
  Country: DE (occurrence: DE)
  Receive Date: 20140605
  Receipt Date: 20140703
  Transmission Date: 20150326
  Serious: Yes (Other)
  Sender: FDA-Public Use
  Company Number: DE-JNJFOC-20140601114

PATIENT
  Age: 71 Year
  Sex: Male
  Weight: 100 kg

DRUGS (3)
  1. XARELTO [Suspect]
     Active Substance: RIVAROXABAN
     Indication: VENOUS THROMBOSIS
     Route: 048
     Dates: start: 201311
  2. XARELTO [Suspect]
     Active Substance: RIVAROXABAN
     Indication: THROMBOSIS PROPHYLAXIS
     Route: 048
     Dates: start: 201311
  3. ARIXTRA [Concomitant]
     Active Substance: FONDAPARINUX SODIUM
     Route: 065

REACTIONS (3)
  - Drug dose omission [Unknown]
  - Deep vein thrombosis [Not Recovered/Not Resolved]
  - Medication error [Unknown]
